FAERS Safety Report 10421047 (Version 1)
Quarter: 2014Q3

REPORT INFORMATION
  Report Type: Spontaneous
  Country: US (occurrence: None)
  Receive Date: 20140722
  Receipt Date: 20140722
  Transmission Date: 20150326
  Serious: No
  Sender: FDA-Public Use
  Company Number: 163-10004-14063984

PATIENT
  Age: 55 Year
  Sex: Female
  Weight: 65.77 kg

DRUGS (4)
  1. OTEZLA [Suspect]
     Active Substance: APREMILAST
     Indication: PSORIATIC ARTHROPATHY
     Route: 048
     Dates: start: 20140605
  2. PREDNISONE(PREDNISONE) (UNKNOWN) [Concomitant]
  3. ADVIL(IBUPROFEN)(UNKNOWN) [Concomitant]
  4. ULTRAM(TRAMADOL HYDROCHLORIDE)(UNKNOWN) [Concomitant]

REACTIONS (2)
  - Headache [None]
  - Nausea [None]
